FAERS Safety Report 5490484-2 (Version None)
Quarter: 2007Q4

REPORT INFORMATION
  Report Type: 
  Country: None (occurrence: None)
  Receive Date: 20071017
  Receipt Date: 20071017
  Transmission Date: 20080405
  Serious: Yes (Hospitalization)
  Sender: FDA-Public Use
  Company Number: None

PATIENT
  Age: 57 Year
  Sex: Female
  Weight: 72.5755 kg

DRUGS (2)
  1. SINGULAIR [Suspect]
     Indication: MULTIPLE ALLERGIES
     Dosage: EVENING ONE PO
     Route: 048
     Dates: start: 20070717, end: 20071015
  2. SINGULAIR [Suspect]
     Indication: NASAL CONGESTION
     Dosage: EVENING ONE PO
     Route: 048
     Dates: start: 20070717, end: 20071015

REACTIONS (6)
  - ANXIETY [None]
  - CHEST DISCOMFORT [None]
  - DEHYDRATION [None]
  - MIDDLE INSOMNIA [None]
  - OXYGEN SATURATION DECREASED [None]
  - PARAESTHESIA [None]
